FAERS Safety Report 18103772 (Version 1)
Quarter: 2020Q3

REPORT INFORMATION
  Report Type: Spontaneous
  Country: IR (occurrence: IR)
  Receive Date: 20200803
  Receipt Date: 20200803
  Transmission Date: 20201103
  Serious: Yes (Disabling, Other)
  Sender: FDA-Public Use
  Company Number: IR-AMGEN-IRNSP2020122384

PATIENT
  Age: 27 Year
  Sex: Male

DRUGS (6)
  1. ACETAZOLAMIDE. [Concomitant]
     Active Substance: ACETAZOLAMIDE
     Indication: CALCINOSIS
     Dosage: 250 MILLIGRAM, BID
  2. ALUMINUM HYDROXIDE [ALUMINIUM HYDROXIDE] [Concomitant]
     Active Substance: ALUMINUM HYDROXIDE
     Indication: CALCINOSIS
     Dosage: TWO TABLESPOON, TID
  3. VITAMIN D3 [Concomitant]
     Active Substance: CHOLECALCIFEROL
     Indication: CALCINOSIS
     Dosage: 1000 INTERNATIONAL UNIT, 3 TIMES/WK
  4. SEVELAMER [Concomitant]
     Active Substance: SEVELAMER
     Indication: CALCINOSIS
     Dosage: 800 MILLIGRAM, FOUR TIMES DAILY
  5. CINACALCET HCL [Suspect]
     Active Substance: CINACALCET HYDROCHLORIDE
     Indication: CALCINOSIS
     Dosage: 30 MILLIGRAM, Q2WK
     Route: 065
  6. CINACALCET HCL [Suspect]
     Active Substance: CINACALCET HYDROCHLORIDE
     Indication: HYPERPHOSPHATAEMIA

REACTIONS (2)
  - Off label use [Unknown]
  - Calcinosis [Not Recovered/Not Resolved]
